FAERS Safety Report 7121875-1 (Version None)
Quarter: 2010Q4

REPORT INFORMATION
  Report Type: 
  Country: None (occurrence: None)
  Receive Date: 20101124
  Receipt Date: 20101118
  Transmission Date: 20110411
  Serious: Yes (Hospitalization)
  Sender: FDA-Public Use
  Company Number: US-US-EMD SERONO, INC.-7028376

PATIENT
  Sex: Female
  Weight: 109 kg

DRUGS (1)
  1. REBIF [Suspect]
     Indication: MULTIPLE SCLEROSIS
     Route: 058
     Dates: start: 20101109

REACTIONS (5)
  - CHEST PAIN [None]
  - COGNITIVE DISORDER [None]
  - HEADACHE [None]
  - INFLAMMATORY PAIN [None]
  - SLEEP APNOEA SYNDROME [None]
